FAERS Safety Report 20224300 (Version 1)
Quarter: 2021Q4

REPORT INFORMATION
  Report Type: Spontaneous
  Country: US (occurrence: US)
  Receive Date: 20211223
  Receipt Date: 20211223
  Transmission Date: 20220303
  Serious: No
  Sender: FDA-Public Use
  Company Number: US-BIOMARINAP-US-2021-140299

PATIENT
  Age: 15 Year
  Sex: Female

DRUGS (2)
  1. ALDURAZYME [Suspect]
     Active Substance: LARONIDASE
     Indication: Mucopolysaccharidosis I
     Dosage: 14.5 MILLIGRAM, QW
     Route: 042
     Dates: start: 20200131
  2. ALDURAZYME [Suspect]
     Active Substance: LARONIDASE
     Dosage: 2.9 MILLIGRAM, QW
     Route: 042
     Dates: start: 20200213, end: 20211201

REACTIONS (1)
  - Product dose omission issue [Unknown]

NARRATIVE: CASE EVENT DATE: 20211201
